FAERS Safety Report 16479260 (Version 1)
Quarter: 2019Q2

REPORT INFORMATION
  Report Type: Spontaneous
  Country: US (occurrence: US)
  Receive Date: 20190626
  Receipt Date: 20190626
  Transmission Date: 20190711
  Serious: Yes (Hospitalization)
  Sender: FDA-Public Use
  Company Number: US-SAOL THERAPEUTICS-2019SAO00192

PATIENT
  Age: 57 Year
  Sex: Male

DRUGS (5)
  1. LIORESAL [Suspect]
     Active Substance: BACLOFEN
     Indication: SPINAL CORD INJURY
     Dosage: 182 ?G, \DAY
     Dates: start: 20190510
  2. COMPOUNDED BACLOFEN [Suspect]
     Active Substance: BACLOFEN
     Indication: SPINAL CORD INJURY
  3. UNSPECIFIED OPIATES [Concomitant]
     Active Substance: UNSPECIFIED INGREDIENT
  4. COMPOUNDED BACLOFEN [Suspect]
     Active Substance: BACLOFEN
     Indication: MUSCLE SPASTICITY
     Dosage: UNK
     Route: 037
     Dates: end: 20190508
  5. LIORESAL [Suspect]
     Active Substance: BACLOFEN
     Indication: MUSCLE SPASTICITY
     Dosage: 269 ?G, \DAY
     Route: 037
     Dates: start: 20190508, end: 20190510

REACTIONS (4)
  - Device dislocation [Unknown]
  - Muscle spasticity [Recovering/Resolving]
  - Somnolence [Unknown]
  - Hypotonia [Recovering/Resolving]

NARRATIVE: CASE EVENT DATE: 201905
